FAERS Safety Report 22072789 (Version 1)
Quarter: 2023Q1

REPORT INFORMATION
  Report Type: Spontaneous
  Country: IL (occurrence: None)
  Receive Date: 20230308
  Receipt Date: 20230308
  Transmission Date: 20230417
  Serious: Yes (Other)
  Sender: FDA-Public Use
  Company Number: IL-ROCHE-3295588

PATIENT
  Age: 58 Year
  Sex: Female

DRUGS (4)
  1. HERCEPTIN [Suspect]
     Active Substance: TRASTUZUMAB
     Indication: Gallbladder cancer metastatic
     Route: 065
  2. PERJETA [Suspect]
     Active Substance: PERTUZUMAB
     Indication: Gallbladder cancer metastatic
     Route: 065
  3. GEMZAR [Suspect]
     Active Substance: GEMCITABINE HYDROCHLORIDE
     Indication: Gallbladder cancer metastatic
     Route: 065
  4. CISPLATIN [Suspect]
     Active Substance: CISPLATIN
     Indication: Gallbladder cancer metastatic
     Route: 065

REACTIONS (3)
  - Disease progression [Unknown]
  - Lipase increased [Unknown]
  - Amylase increased [Unknown]

NARRATIVE: CASE EVENT DATE: 20210513
